FAERS Safety Report 17215033 (Version 2)
Quarter: 2020Q2

REPORT INFORMATION
  Report Type: Report from Study
  Country: US (occurrence: US)
  Receive Date: 20191230
  Receipt Date: 20200630
  Transmission Date: 20200713
  Serious: Yes (Other)
  Sender: FDA-Public Use
  Company Number: NVSC2019US080910

PATIENT
  Age: 56 Year
  Sex: Male

DRUGS (2)
  1. COSENTYX [Suspect]
     Active Substance: SECUKINUMAB
     Indication: PSORIATIC ARTHROPATHY
     Dosage: 150 MG, QW (0,1,2,3 AND 4 THEN 300 MG (2 PENS) EVERY FOUR WEEKS THEREAFTER)
     Route: 058
  2. COSENTYX [Suspect]
     Active Substance: SECUKINUMAB
     Indication: PSORIASIS
     Dosage: 300 MG, QMO
     Route: 058

REACTIONS (6)
  - Pruritus [Unknown]
  - Drug ineffective [Unknown]
  - Psoriasis [Unknown]
  - Skin plaque [Unknown]
  - Psoriatic arthropathy [Unknown]
  - Pain [Unknown]
